FAERS Safety Report 7570498-9 (Version None)
Quarter: 2011Q2

REPORT INFORMATION
  Report Type: 
  Country: None (occurrence: None)
  Receive Date: 20110622
  Receipt Date: 20110622
  Transmission Date: 20111010
  Serious: Yes (Life-Threatening)
  Sender: FDA-Public Use
  Company Number: None

PATIENT
  Age: 53 Year
  Sex: Male
  Weight: 68.0396 kg

DRUGS (1)
  1. AMBIEN CR [Suspect]
     Indication: INSOMNIA
     Dosage: PO QHS PRN
     Route: 048
     Dates: start: 20091101, end: 20100412

REACTIONS (2)
  - AMNESIA [None]
  - IMPAIRED DRIVING ABILITY [None]
